FAERS Safety Report 7350594-1 (Version None)
Quarter: 2011Q1

REPORT INFORMATION
  Report Type: 
  Country: None (occurrence: None)
  Receive Date: 20110314
  Receipt Date: 20110308
  Transmission Date: 20110831
  Serious: Yes (Disabling)
  Sender: FDA-Public Use
  Company Number: DE-MERCK-1102DEU00058

PATIENT
  Age: 88 Year
  Sex: Female
  Weight: 58 kg

DRUGS (10)
  1. TRUSOPT [Suspect]
     Indication: GLAUCOMA
     Route: 047
     Dates: start: 20101217, end: 20110302
  2. PHENPROCOUMON [Concomitant]
     Indication: CEREBROVASCULAR ACCIDENT
     Route: 048
     Dates: start: 20060101
  3. TAFLUPROST [Concomitant]
     Route: 047
     Dates: start: 20100101
  4. LEVOTHYROXINE SODIUM [Concomitant]
     Indication: THYROIDECTOMY
     Route: 048
     Dates: start: 20010101
  5. CALCIUM CARBONATE AND CHOLECALCIFEROL [Concomitant]
     Indication: OSTEOPOROSIS
     Route: 048
     Dates: start: 20020101
  6. PHENPROCOUMON [Concomitant]
     Indication: ARRHYTHMIA
     Route: 048
     Dates: start: 20060101
  7. BISOPROLOL [Concomitant]
     Indication: HYPERTENSION
     Route: 048
     Dates: start: 20020101
  8. NITRENDIPINE [Concomitant]
     Indication: HYPERTENSION
     Route: 048
     Dates: start: 19990101
  9. VALSARTAN [Concomitant]
     Indication: HYPERTENSION
     Route: 048
     Dates: start: 19900101
  10. MAGNESIUM SULFATE [Concomitant]
     Indication: ARRHYTHMIA
     Route: 048
     Dates: start: 20020101

REACTIONS (6)
  - DYSPNOEA [None]
  - NAUSEA [None]
  - BLOOD PRESSURE DECREASED [None]
  - DYSPEPSIA [None]
  - HEADACHE [None]
  - SOMNOLENCE [None]
